FAERS Safety Report 6074902-7 (Version None)
Quarter: 2009Q1

REPORT INFORMATION
  Report Type: 
  Country: None (occurrence: None)
  Receive Date: 20090212
  Receipt Date: 20090210
  Transmission Date: 20090719
  Serious: Yes (Hospitalization)
  Sender: FDA-Public Use
  Company Number: US-BRISTOL-MYERS SQUIBB COMPANY-14501720

PATIENT
  Age: 65 Year
  Sex: Male
  Weight: 54 kg

DRUGS (9)
  1. ERBITUX [Suspect]
     Indication: PHARYNGEAL CANCER STAGE UNSPECIFIED
     Dosage: 400MG/M2 LOADING DOSE WK ONE,250MG/M2 WKLY X 7;1ST COURSE ON 29JAN09 AND COURSE ASSOCIATED  02FEB09
     Route: 042
     Dates: start: 20090203, end: 20090203
  2. CISPLATIN [Suspect]
     Indication: PHARYNGEAL CANCER STAGE UNSPECIFIED
     Dosage: START DATE OF COURSE - 29-JAN-2009;1ST COURSE ON 29JAN09 AND COURSE ASSOCIATED  02FEB09
     Route: 042
     Dates: start: 20090203, end: 20090203
  3. RADIATION THERAPY [Suspect]
     Indication: PHARYNGEAL CANCER STAGE UNSPECIFIED
     Dosage: 10GY TOTAL DOSE, ELAPSED DAYS 5, NO OF FRACTIONS 35
     Dates: start: 20090206, end: 20090206
  4. ATIVAN [Concomitant]
  5. COMPAZINE [Concomitant]
  6. DURAGESIC-100 [Concomitant]
  7. LORTAB [Concomitant]
  8. MINOCYCLINE [Concomitant]
  9. VENOFER [Concomitant]

REACTIONS (3)
  - HYPOXIA [None]
  - MYOCARDIAL INFARCTION [None]
  - PULMONARY OEDEMA [None]
